FAERS Safety Report 10277470 (Version 2)
Quarter: 2014Q3

REPORT INFORMATION
  Report Type: Report from Study
  Country: US (occurrence: US)
  Receive Date: 20140703
  Receipt Date: 20140703
  Transmission Date: 20150326
  Serious: Yes (Death)
  Sender: FDA-Public Use
  Company Number: US-EXELIXIS-CABO-14004383

PATIENT
  Sex: Female

DRUGS (2)
  1. CABOZANTINIB [Suspect]
     Active Substance: CABOZANTINIB
     Indication: CONNECTIVE TISSUE NEOPLASM
     Dosage: 60 MG, QD
     Route: 048
     Dates: start: 20140206, end: 2014
  2. CABOZANTINIB [Suspect]
     Active Substance: CABOZANTINIB
     Dosage: 60 MG, QD
     Route: 048
     Dates: start: 2014, end: 20140627

REACTIONS (4)
  - Death [Fatal]
  - Malaise [Unknown]
  - Aphasia [Unknown]
  - Off label use [Unknown]

NARRATIVE: CASE EVENT DATE: 2014
